FAERS Safety Report 9660856 (Version 1)
Quarter: 2013Q4

REPORT INFORMATION
  Report Type: Report from Study
  Country: US (occurrence: US)
  Receive Date: 20131031
  Receipt Date: 20131031
  Transmission Date: 20140711
  Serious: Yes (Other)
  Sender: FDA-Public Use
  Company Number: US-BAYER-2013-129718

PATIENT
  Sex: Male

DRUGS (1)
  1. STIVARGA [Suspect]
     Indication: COLORECTAL CANCER
     Dosage: 160 MG QD, 40 MG, 4 QD
     Route: 048

REACTIONS (4)
  - Palmar-plantar erythrodysaesthesia syndrome [None]
  - Mobility decreased [None]
  - Tongue ulceration [None]
  - Abdominal pain [None]
